FAERS Safety Report 18186309 (Version 1)
Quarter: 2020Q3

REPORT INFORMATION
  Report Type: Spontaneous
  Country: US (occurrence: US)
  Receive Date: 20200824
  Receipt Date: 20200824
  Transmission Date: 20201103
  Serious: No
  Sender: FDA-Public Use
  Company Number: US-CELLTRION INC.-2020US022260

PATIENT

DRUGS (1)
  1. INFLECTRA [Suspect]
     Active Substance: INFLIXIMAB-DYYB
     Indication: PRODUCT USED FOR UNKNOWN INDICATION
     Dosage: 350 MG (100MG/20ML), EVERY 14 DAYS (QUANTITY: 4 VIALS, REFILLS:11)
     Route: 065

REACTIONS (3)
  - Off label use [Unknown]
  - Unevaluable event [Unknown]
  - Product use issue [Unknown]
